FAERS Safety Report 16345969 (Version 1)
Quarter: 2019Q2

REPORT INFORMATION
  Report Type: Other
  Country: CA (occurrence: CA)
  Receive Date: 20190523
  Receipt Date: 20190523
  Transmission Date: 20190711
  Serious: Yes (Other)
  Sender: FDA-Public Use
  Company Number: CA-APOTEX-2019AP014386

PATIENT
  Sex: Male

DRUGS (1)
  1. CYCLOSPORINE. [Suspect]
     Active Substance: CYCLOSPORINE
     Indication: PRODUCT USED FOR UNKNOWN INDICATION
     Dosage: UNK
     Route: 065

REACTIONS (13)
  - Indifference [Unknown]
  - Memory impairment [Unknown]
  - Skin irritation [Unknown]
  - Fatigue [Unknown]
  - Drug ineffective [Unknown]
  - Skin plaque [Unknown]
  - Burning sensation [Unknown]
  - Disturbance in attention [Unknown]
  - Mental impairment [Unknown]
  - Skin exfoliation [Unknown]
  - Psoriatic arthropathy [Unknown]
  - Pruritus [Unknown]
  - Nausea [Unknown]
